FAERS Safety Report 7158144-X (Version None)
Quarter: 2010Q4

REPORT INFORMATION
  Report Type: 
  Country: None (occurrence: None)
  Receive Date: 20101214
  Receipt Date: 20100503
  Transmission Date: 20110411
  Serious: No
  Sender: FDA-Public Use
  Company Number: US-ASTRAZENECA-2010SE19931

PATIENT
  Age: 65 Year
  Sex: Female
  Weight: 52.2 kg

DRUGS (2)
  1. CRESTOR [Suspect]
     Indication: CARDIAC DISORDER
     Route: 048
     Dates: start: 20100408
  2. CONTRAST DYE [Concomitant]

REACTIONS (4)
  - PRURITUS [None]
  - RASH [None]
  - SKIN BURNING SENSATION [None]
  - SKIN IRRITATION [None]
